FAERS Safety Report 7199439-3 (Version None)
Quarter: 2010Q4

REPORT INFORMATION
  Report Type: 
  Country: None (occurrence: None)
  Receive Date: 20101215
  Receipt Date: 20101210
  Transmission Date: 20110411
  Serious: Yes (Other)
  Sender: FDA-Public Use
  Company Number: 2010SP063979

PATIENT
  Sex: Male

DRUGS (1)
  1. REMERGIL (MIRTAZAPINE /01293201/) [Suspect]
     Indication: PRODUCT USED FOR UNKNOWN INDICATION

REACTIONS (1)
  - CONDUCTION DISORDER [None]
